FAERS Safety Report 6760936-3 (Version None)
Quarter: 2010Q2

REPORT INFORMATION
  Report Type: 
  Country: None (occurrence: None)
  Receive Date: 20100608
  Receipt Date: 20100602
  Transmission Date: 20101027
  Serious: Yes (Other)
  Sender: FDA-Public Use
  Company Number: US-RB-010108-10

PATIENT
  Age: 49 Year
  Sex: Male

DRUGS (3)
  1. SUBOXONE [Suspect]
     Route: 060
     Dates: start: 20090501
  2. CLONIDINE [Concomitant]
     Dosage: UNKNOWN DOSING DETAILS
     Route: 065
  3. NEURONTIN [Concomitant]
     Dosage: UNKNOWN DOSING DETAILS
     Route: 065

REACTIONS (7)
  - BLOOD PRESSURE ABNORMAL [None]
  - CONTUSION [None]
  - FALL [None]
  - LOSS OF CONSCIOUSNESS [None]
  - MALAISE [None]
  - MUSCLE SPASMS [None]
  - TREMOR [None]
